FAERS Safety Report 7284054-3 (Version None)
Quarter: 2011Q1

REPORT INFORMATION
  Report Type: 
  Country: None (occurrence: None)
  Receive Date: 20110209
  Receipt Date: 20110128
  Transmission Date: 20110831
  Serious: Yes (Hospitalization)
  Sender: FDA-Public Use
  Company Number: US-NAPPMUNDI-MAG-2011-0001394

PATIENT
  Age: 72 Year
  Sex: Male

DRUGS (4)
  1. MULTI-VITAMINS [Concomitant]
  2. POVIDONE IODINE [Suspect]
     Indication: DECUBITUS ULCER
     Route: 061
  3. HALOPERIDOL [Concomitant]
     Dosage: 1 MG, BID
  4. BUMETANIDE [Concomitant]
     Dosage: 1 MG, DAILY

REACTIONS (1)
  - HYPERTHYROIDISM [None]
